FAERS Safety Report 12484408 (Version 1)
Quarter: 2016Q2

REPORT INFORMATION
  Report Type: Spontaneous
  Country: US (occurrence: None)
  Receive Date: 20160620
  Receipt Date: 20160620
  Transmission Date: 20160815
  Serious: Yes (Disabling)
  Sender: FDA-Public Use
  Company Number: None

PATIENT
  Age: 31 Year
  Sex: Female
  Weight: 52.16 kg

DRUGS (8)
  1. MIRVASO [Suspect]
     Active Substance: BRIMONIDINE TARTRATE
     Indication: ROSACEA
     Dosage: BID APPLIED TO A SURFACE, USUALLY THE SKIN
     Dates: start: 20160324, end: 20160331
  2. FINACEA [Concomitant]
     Active Substance: AZELAIC ACID
  3. MOTRIN [Concomitant]
     Active Substance: IBUPROFEN
  4. TYLENOL [Concomitant]
     Active Substance: ACETAMINOPHEN
  5. FIORCET [Concomitant]
  6. ZYRTEC [Concomitant]
     Active Substance: CETIRIZINE HYDROCHLORIDE
  7. BENADRYL [Concomitant]
     Active Substance: DIPHENHYDRAMINE HYDROCHLORIDE
  8. ORACEA [Concomitant]
     Active Substance: DOXYCYCLINE

REACTIONS (3)
  - Application site pain [None]
  - Application site erythema [None]
  - Application site discolouration [None]

NARRATIVE: CASE EVENT DATE: 20160324
